FAERS Safety Report 6144596-0 (Version None)
Quarter: 2009Q2

REPORT INFORMATION
  Report Type: 
  Country: None (occurrence: None)
  Receive Date: 20090406
  Receipt Date: 20090331
  Transmission Date: 20091009
  Serious: Yes (Life-Threatening, Hospitalization)
  Sender: FDA-Public Use
  Company Number: AU-ASTRAZENECA-2009AP01735

PATIENT
  Age: 26181 Day
  Sex: Male
  Weight: 87 kg

DRUGS (16)
  1. SEROQUEL [Suspect]
     Indication: DEPRESSION
     Route: 048
     Dates: start: 20060101, end: 20080101
  2. SEROQUEL [Suspect]
     Route: 048
     Dates: start: 20080101
  3. NARDIL [Concomitant]
     Indication: DEPRESSION
  4. THYROXIN [Concomitant]
     Route: 048
  5. THYROXIN [Concomitant]
     Route: 048
  6. SOMAC [Concomitant]
     Route: 048
  7. BLACKMOORES FISH OIL [Concomitant]
     Route: 048
  8. HI STRENGTH COENZYME [Concomitant]
     Route: 048
  9. QUIETAPINE [Concomitant]
     Route: 048
  10. CEFACLOR [Concomitant]
     Route: 048
  11. PROPRANOLOL [Concomitant]
     Route: 048
  12. NICOTINE ACID [Concomitant]
     Route: 048
  13. GABAPENTIN [Concomitant]
     Route: 048
  14. PHENELZINE [Concomitant]
     Route: 048
  15. PHENELZINE [Concomitant]
     Route: 048
  16. AUGMENTIN '125' [Concomitant]
     Indication: CELLULITIS

REACTIONS (1)
  - PULMONARY EMBOLISM [None]
